FAERS Safety Report 21180075 (Version 1)
Quarter: 2022Q3

REPORT INFORMATION
  Report Type: Spontaneous
  Country: US (occurrence: None)
  Receive Date: 20220805
  Receipt Date: 20220805
  Transmission Date: 20221027
  Serious: No
  Sender: FDA-Public Use
  Company Number: None

PATIENT
  Age: 62 Year
  Sex: Female

DRUGS (2)
  1. HUMIRA [Suspect]
     Active Substance: ADALIMUMAB
     Indication: Rheumatoid arthritis
     Dosage: FREQUENCY : EVERY OTHER WEEK;?INJECT 40MG SUBCUTANEOUSLY EVERY 2 WEEKS IN THE?ABDOMEN OR THIGH (ROTA
     Route: 058
     Dates: start: 202101
  2. RASUVO [Suspect]
     Active Substance: METHOTREXATE SODIUM
     Indication: Rheumatoid arthritis
     Dosage: FREQUENCY : WEEKLY;?INJECT 12.5MG (0.25ML) SUBCUTANEOUSLY ONCE WEEKLY ON?THE SAME DAY EACH WEEK AS D
     Route: 058
     Dates: start: 202006

REACTIONS (2)
  - Viral infection [None]
  - Therapy interrupted [None]
